FAERS Safety Report 8966248 (Version 1)
Quarter: 2012Q4

REPORT INFORMATION
  Report Type: 
  Country: FR (occurrence: FR)
  Receive Date: 20121217
  Receipt Date: 20121217
  Transmission Date: 20130627
  Serious: Yes (Life-Threatening, Hospitalization, Other)
  Sender: FDA-Public Use
  Company Number: FR-ABBOTT-12P-056-1020166-00

PATIENT
  Sex: Female

DRUGS (1)
  1. DUODOPA [Suspect]
     Indication: PARKINSON^S DISEASE
     Dates: start: 201211

REACTIONS (6)
  - Orthostatic hypotension [Unknown]
  - Postoperative wound infection [Recovered/Resolved]
  - Incorrect route of drug administration [Unknown]
  - Drug ineffective [Unknown]
  - Hallucination [Unknown]
  - Ileus [Unknown]
